FAERS Safety Report 9408665 (Version 2)
Quarter: 2013Q3

REPORT INFORMATION
  Report Type: Spontaneous
  Country: US (occurrence: None)
  Receive Date: 20130716
  Receipt Date: 20130724
  Transmission Date: 20140515
  Serious: Yes (Hospitalization)
  Sender: FDA-Public Use
  Company Number: 2013P1011312

PATIENT
  Age: 7 Month
  Sex: Male

DRUGS (1)
  1. KAYEXALATE [Suspect]
     Indication: BLOOD POTASSIUM INCREASED
     Dates: start: 20121109

REACTIONS (4)
  - Hyperkalaemia [None]
  - Blood calcium decreased [None]
  - Surgery [None]
  - Drug ineffective [None]
